FAERS Safety Report 8933696 (Version 1)
Quarter: 2012Q4

REPORT INFORMATION
  Report Type: 
  Country: GB (occurrence: GB)
  Receive Date: 20121129
  Receipt Date: 20121129
  Transmission Date: 20130627
  Serious: Yes (Life-Threatening, Hospitalization)
  Sender: FDA-Public Use
  Company Number: GB-ROCHE-1160593

PATIENT
  Age: 60 Year
  Sex: Female
  Weight: 102 kg

DRUGS (12)
  1. TOCILIZUMAB [Suspect]
     Indication: RHEUMATOID ARTHRITIS
     Route: 042
     Dates: start: 20110304, end: 20121104
  2. METHOTREXATE [Suspect]
     Indication: RHEUMATOID ARTHRITIS
     Route: 058
     Dates: start: 200806, end: 20111104
  3. ALENDRONIC ACID [Concomitant]
     Route: 065
  4. CETIRIZINE [Concomitant]
     Route: 065
  5. CITALOPRAM [Concomitant]
     Route: 065
  6. ETODOLAC [Concomitant]
     Route: 065
  7. FOLIC ACID [Concomitant]
     Route: 065
  8. LANSOPRAZOLE [Concomitant]
     Route: 065
  9. LEFLUNOMIDE [Concomitant]
     Route: 065
  10. PERINDOPRIL [Concomitant]
     Route: 065
  11. PREDNISOLONE [Concomitant]
     Route: 065
  12. TRAMADOL [Concomitant]
     Route: 065

REACTIONS (2)
  - Hypersensitivity [Recovering/Resolving]
  - Pneumonitis [Recovering/Resolving]
